FAERS Safety Report 9851822 (Version 1)
Quarter: 2014Q1

REPORT INFORMATION
  Report Type: Spontaneous
  Country: US (occurrence: None)
  Receive Date: 20140127
  Receipt Date: 20140127
  Transmission Date: 20141002
  Serious: Yes (Other)
  Sender: FDA-Public Use
  Company Number: 1401-0145

PATIENT
  Age: 71 Year
  Sex: Male

DRUGS (8)
  1. EYLEA (AFLIBERCEPT) (INJECTION) (AFLIBERCEPT) [Suspect]
     Indication: DIABETIC RETINAL OEDEMA
     Dosage: 2 MG, ONCE, INTRAVITREAL
     Dates: start: 20131203, end: 20131203
  2. DECOLLATE [Concomitant]
  3. ATENOLOL (ATENOLOL) [Concomitant]
  4. AMLODIPINE (AMLODIPINE) [Concomitant]
  5. SIMVASTATIN (SIMVASTATIN) [Concomitant]
  6. GLYBURIDE (GLIBENCLAMIDE) [Concomitant]
  7. FISH OIL (FISH OIL) [Concomitant]
  8. ASPIRIN (ACETYLSALICYLIC ACID) [Concomitant]

REACTIONS (2)
  - Drug ineffective [None]
  - Visual acuity reduced [None]
